FAERS Safety Report 6033061-7 (Version None)
Quarter: 2009Q1

REPORT INFORMATION
  Report Type: 
  Country: None (occurrence: None)
  Receive Date: 20090109
  Receipt Date: 20081229
  Transmission Date: 20090719
  Serious: Yes (Other)
  Sender: FDA-Public Use
  Company Number: CA-PFIZER INC-2008160821

PATIENT

DRUGS (2)
  1. SUNITINIB MALATE [Suspect]
     Indication: DIFFUSE LARGE B-CELL LYMPHOMA
     Dosage: 37.5 MG, 1X/DAY
     Route: 048
     Dates: start: 20080304
  2. MORPHINE SULFATE [Suspect]

REACTIONS (1)
  - SOMNOLENCE [None]
